FAERS Safety Report 8613524-8 (Version None)
Quarter: 2012Q3

REPORT INFORMATION
  Report Type: 
  Country: None (occurrence: None)
  Receive Date: 20120823
  Receipt Date: 20120807
  Transmission Date: 20120928
  Serious: Yes (Hospitalization, Other)
  Sender: FDA-Public Use
  Company Number: JP-009507513-1207JPN012653

PATIENT

DRUGS (13)
  1. MOTILIUM [Concomitant]
     Dosage: 30 MG, QD
     Route: 048
     Dates: start: 20120613
  2. SALAGEN [Concomitant]
     Indication: PROPHYLAXIS
     Dosage: 15 MG, QD
     Route: 048
  3. ALLOPURINOL [Concomitant]
     Indication: PROPHYLAXIS
     Dosage: 200 MG, QD (CUMULATIVE DOSE: 3000 MG)
     Route: 048
     Dates: start: 20120606, end: 20120724
  4. PEG-INTRON [Suspect]
     Indication: HEPATITIS C
     Dosage: 1.5 MICROGRAM PER KILOGRAM, QW
     Route: 058
     Dates: start: 20120607, end: 20120712
  5. REBETOL [Suspect]
     Indication: HEPATITIS C
     Dosage: 600 MG, QD (CUMULATIVE DOSE: 8400 MG)
     Route: 048
     Dates: start: 20120607
  6. LANSOPRAZOLE [Concomitant]
     Indication: PROPHYLAXIS
     Dosage: 15 MG, QD
     Route: 048
  7. REBETOL [Suspect]
     Dosage: 400 MG, QD (CUMULATIVE DOSE: 8400 MG)
     Route: 048
     Dates: start: 20120705, end: 20120712
  8. TELAVIC [Suspect]
     Dosage: 1500 MG, QD (CUMULATIVE DOSE: 29250 MG)
     Route: 048
     Dates: start: 20120618, end: 20120717
  9. REBETOL [Suspect]
     Dosage: 200 MG, QD (CUMULATIVE DOSE: 8400 MG)
     Route: 048
     Dates: start: 20120712, end: 20120717
  10. AMLODIPINE [Concomitant]
     Indication: PROPHYLAXIS
     Dosage: 5 MG, QD
     Route: 048
  11. PEG-INTRON [Suspect]
     Dosage: 50 MICROGRAM, QW
     Route: 058
     Dates: start: 20120712, end: 20120718
  12. TELAVIC [Suspect]
     Indication: HEPATITIS C
     Dosage: 2250 MG, QD (CUMULATIVE DOSE: 29250 MG)
     Route: 048
     Dates: start: 20120607, end: 20120617
  13. CANDESARTAN CILEXETIL [Concomitant]
     Indication: PROPHYLAXIS
     Dosage: 8 MG, QD
     Route: 048

REACTIONS (2)
  - ASCITES [None]
  - ANAEMIA [None]
